FAERS Safety Report 15403816 (Version 1)
Quarter: 2018Q3

REPORT INFORMATION
  Report Type: Spontaneous
  Country: US (occurrence: US)
  Receive Date: 20180919
  Receipt Date: 20180919
  Transmission Date: 20181010
  Serious: No
  Sender: FDA-Public Use
  Company Number: US-BAUSCH-BL-2018-025199

PATIENT
  Sex: Female

DRUGS (1)
  1. VITRASE [Suspect]
     Active Substance: HYALURONIDASE, OVINE
     Indication: THERAPEUTIC PROCEDURE
     Route: 065

REACTIONS (1)
  - Drug ineffective [Not Recovered/Not Resolved]
